FAERS Safety Report 4729722-X (Version None)
Quarter: 2005Q3

REPORT INFORMATION
  Report Type: 
  Country: None (occurrence: None)
  Receive Date: 20050801
  Receipt Date: 20050408
  Transmission Date: 20060218
  Serious: Yes (Hospitalization, Other)
  Sender: FDA-Public Use
  Company Number: US-MERCK-0504USA01309

PATIENT
  Age: 59 Year
  Sex: Female
  Weight: 75 kg

DRUGS (10)
  1. VIOXX [Suspect]
     Indication: ARTHRITIS
     Route: 048
     Dates: start: 20010101, end: 20040901
  2. TOPROL-XL [Concomitant]
     Route: 065
     Dates: start: 20000101
  3. DIOVAN [Concomitant]
     Route: 065
     Dates: start: 20000101
  4. TYLENOL (CAPLET) [Concomitant]
     Route: 065
     Dates: start: 20000101
  5. PAXIL [Concomitant]
     Route: 065
  6. BUSPAR [Concomitant]
     Route: 065
  7. POTASSIUM CHLORIDE [Concomitant]
     Route: 065
  8. HYDROCHLOROTHIAZIDE [Concomitant]
     Route: 065
     Dates: start: 20000101
  9. KLONOPIN [Concomitant]
     Route: 065
     Dates: start: 20010101
  10. ASPIRIN [Concomitant]
     Route: 065
     Dates: start: 19990101

REACTIONS (11)
  - ANGINA PECTORIS [None]
  - DEPRESSION [None]
  - DIABETES MELLITUS [None]
  - DYSPEPSIA [None]
  - HYPERKALAEMIA [None]
  - HYPERTENSION [None]
  - INSOMNIA [None]
  - MYOCARDIAL INFARCTION [None]
  - OSTEOPOROSIS [None]
  - PANIC ATTACK [None]
  - POLYTRAUMATISM [None]
